FAERS Safety Report 8942030 (Version 2)
Quarter: 2013Q1

REPORT INFORMATION
  Report Type: Spontaneous
  Country: US (occurrence: US)
  Receive Date: 20121130
  Receipt Date: 20130109
  Transmission Date: 20140127
  Serious: No
  Sender: FDA-Public Use
  Company Number: US-TEVA-372901USA

PATIENT
  Sex: Female
  Weight: 72.64 kg

DRUGS (2)
  1. FENTORA [Suspect]
     Indication: COMPLEX REGIONAL PAIN SYNDROME
     Dosage: 3200 MILLIGRAM DAILY; TAKES FOUR SCHEDULED DOSES
     Route: 002
     Dates: start: 2005
  2. OXYCODONE [Concomitant]
     Indication: COMPLEX REGIONAL PAIN SYNDROME
     Dosage: 120 MILLIGRAM DAILY; WAS ON 80 MG
     Route: 048

REACTIONS (5)
  - Pain [Recovered/Resolved]
  - Weight decreased [Recovering/Resolving]
  - Drug prescribing error [Unknown]
  - Treatment noncompliance [Unknown]
  - Pyrexia [Unknown]
